FAERS Safety Report 11690882 (Version 1)
Quarter: 2015Q4

REPORT INFORMATION
  Report Type: Spontaneous
  Country: US (occurrence: None)
  Receive Date: 20151102
  Receipt Date: 20151102
  Transmission Date: 20160304
  Serious: Yes (Life-Threatening, Hospitalization, Other)
  Sender: FDA-Public Use
  Company Number: US-MDT-ADR-2015-02064

PATIENT
  Age: 55 Year
  Sex: Male

DRUGS (2)
  1. MORPHINE INTRATHECAL  2 MG/ML [Suspect]
     Active Substance: MORPHINE
     Dosage: 1.5418 MG/DAY
  2. BACLOFEN INTRATHECAL 500 UG/ML [Suspect]
     Active Substance: BACLOFEN
     Indication: MUSCLE SPASTICITY
     Dosage: 385.44 UG/DAY

REACTIONS (5)
  - Depressed level of consciousness [None]
  - Therapeutic response unexpected [None]
  - Respiratory rate decreased [None]
  - Bradycardia [None]
  - Mental status changes [None]
